FAERS Safety Report 5401197-7 (Version None)
Quarter: 2007Q3

REPORT INFORMATION
  Report Type: 
  Country: None (occurrence: None)
  Receive Date: 20070731
  Receipt Date: 20070720
  Transmission Date: 20080115
  Serious: Yes (Hospitalization)
  Sender: FDA-Public Use
  Company Number: US-AMGEN-STX235236

PATIENT
  Sex: Female

DRUGS (9)
  1. ENBREL [Suspect]
     Indication: ERYTHRODERMIC PSORIASIS
     Route: 065
  2. METHOTREXATE SODIUM [Concomitant]
     Route: 065
  3. CARDIZEM CD [Concomitant]
     Route: 065
  4. CLONAZEPAM [Concomitant]
     Route: 065
  5. PLAVIX [Concomitant]
     Route: 065
  6. POTASSIUM CHLORIDE [Concomitant]
     Route: 065
  7. LASIX [Concomitant]
     Route: 065
  8. ARICEPT [Concomitant]
     Route: 065
  9. ADVAIR DISKUS 100/50 [Concomitant]
     Route: 050

REACTIONS (1)
  - CARDIAC FAILURE CONGESTIVE [None]
